FAERS Safety Report 13185909 (Version 1)
Quarter: 2017Q1

REPORT INFORMATION
  Report Type: Other
  Country: GB (occurrence: KR)
  Receive Date: 20170203
  Receipt Date: 20170203
  Transmission Date: 20170428
  Serious: Yes (Other)
  Sender: FDA-Public Use
  Company Number: KR-INTERNATIONAL MEDICATION SYSTEMS, LIMITED-1062737

PATIENT
  Sex: Male

DRUGS (8)
  1. THIOPENTAL SODIUM. [Concomitant]
     Active Substance: THIOPENTAL SODIUM
  2. FENTANYL. [Concomitant]
     Active Substance: FENTANYL
  3. EPINEPHRINE. [Suspect]
     Active Substance: EPINEPHRINE
     Route: 042
  4. SEVOFLURANE. [Concomitant]
     Active Substance: SEVOFLURANE
  5. FENTANYL. [Concomitant]
     Active Substance: FENTANYL
  6. MIDAZOLAM [Concomitant]
     Active Substance: MIDAZOLAM HYDROCHLORIDE
  7. VECURONIUM [Concomitant]
     Active Substance: VECURONIUM BROMIDE
  8. OXYGEN. [Concomitant]
     Active Substance: OXYGEN

REACTIONS (4)
  - Haemodynamic instability [Recovered/Resolved]
  - Left ventricle outflow tract obstruction [Recovered/Resolved]
  - Systolic anterior motion of mitral valve [Recovered/Resolved]
  - Mitral valve incompetence [Recovered/Resolved]
